FAERS Safety Report 10204651 (Version 1)
Quarter: 2014Q2

REPORT INFORMATION
  Report Type: Spontaneous
  Country: IL (occurrence: IL)
  Receive Date: 20140529
  Receipt Date: 20140529
  Transmission Date: 20141212
  Serious: Yes (Other)
  Sender: FDA-Public Use
  Company Number: IL-BAYER-2014-078920

PATIENT
  Age: 32 Year
  Sex: Female

DRUGS (1)
  1. QLAIRA [Suspect]
     Dosage: UNK
     Route: 048
     Dates: start: 201310

REACTIONS (4)
  - Pregnancy on oral contraceptive [None]
  - Drug ineffective [None]
  - Haemorrhage in pregnancy [None]
  - Maternal exposure during pregnancy [None]
